FAERS Safety Report 8180223-9 (Version None)
Quarter: 2012Q1

REPORT INFORMATION
  Report Type: 
  Country: None (occurrence: None)
  Receive Date: 20120229
  Receipt Date: 20120216
  Transmission Date: 20120608
  Serious: Yes (Other)
  Sender: FDA-Public Use
  Company Number: 1200454

PATIENT
  Age: 71 Year
  Sex: Male

DRUGS (2)
  1. CARBOPLATIN [Suspect]
     Indication: MALIGNANT MELANOMA
     Dosage: 260 MG, CYCLIC, INTRAVENOUS DRIP
     Route: 041
     Dates: start: 20120206, end: 20120206
  2. PACLITAXEL [Concomitant]

REACTIONS (4)
  - FEELING HOT [None]
  - PRURITUS [None]
  - INFUSION RELATED REACTION [None]
  - ERYTHEMA [None]
